FAERS Safety Report 8791020 (Version 2)
Quarter: 2013Q1

REPORT INFORMATION
  Report Type: Spontaneous
  Country: US (occurrence: None)
  Receive Date: 20120907
  Receipt Date: 20121207
  Transmission Date: 20140127
  Serious: Yes (Hospitalization)
  Sender: FDA-Public Use
  Company Number: 2012-0743

PATIENT
  Age: 67 Year
  Sex: Female

DRUGS (2)
  1. KYPROLIS [Suspect]
     Indication: PLASMA CELL MYELOMA
     Dosage: (36 MG, 2 IN 1 D)
     Route: 042
     Dates: start: 20120821, end: 20120821
  2. DEXAMETHASONE [Concomitant]

REACTIONS (8)
  - Dyspnoea [None]
  - Respiratory failure [None]
  - Pancytopenia [None]
  - Pneumonia bacterial [None]
  - Chest pain [None]
  - Pulmonary oedema [None]
  - Tachycardia [None]
  - Wheezing [None]
